FAERS Safety Report 9379934 (Version 1)
Quarter: 2013Q3

REPORT INFORMATION
  Report Type: Spontaneous
  Country: US (occurrence: None)
  Receive Date: 20130701
  Receipt Date: 20130701
  Transmission Date: 20140515
  Serious: Yes (Other)
  Sender: FDA-Public Use
  Company Number: None

PATIENT
  Age: 85 Year
  Sex: Male

DRUGS (1)
  1. XELODA [Suspect]
     Dosage: (DIVIDED)
     Route: 048
     Dates: start: 20130614, end: 20130627

REACTIONS (3)
  - Chest pain [None]
  - Nausea [None]
  - Heart rate increased [None]
